FAERS Safety Report 13144326 (Version 5)
Quarter: 2017Q3

REPORT INFORMATION
  Report Type: Report from Study
  Country: CA (occurrence: CA)
  Receive Date: 20170124
  Receipt Date: 20170918
  Transmission Date: 20171127
  Serious: Yes (Hospitalization)
  Sender: FDA-Public Use
  Company Number: CA-TAKEDA-2015TUS013564

PATIENT
  Age: 33 Year
  Sex: Female
  Weight: 49.5 kg

DRUGS (4)
  1. VEDOLIZUMAB [Suspect]
     Active Substance: VEDOLIZUMAB
     Indication: CROHN^S DISEASE
     Dosage: 300 MG, UNK
     Route: 042
     Dates: start: 20150827
  2. VEDOLIZUMAB [Suspect]
     Active Substance: VEDOLIZUMAB
     Dosage: 300 MG, UNK
     Route: 042
     Dates: start: 20160509
  3. VEDOLIZUMAB [Suspect]
     Active Substance: VEDOLIZUMAB
     Dosage: 300 MG, Q4WEEKS
     Route: 042
     Dates: start: 20170908
  4. PREDNISONE. [Concomitant]
     Active Substance: PREDNISONE
     Dosage: 40 MG, QD
     Dates: start: 201701

REACTIONS (18)
  - Skin irritation [Unknown]
  - Migraine [Unknown]
  - Headache [Unknown]
  - Crohn^s disease [Recovered/Resolved]
  - Abdominal pain upper [Unknown]
  - Weight decreased [Unknown]
  - Pharyngitis streptococcal [Unknown]
  - Off label use [Unknown]
  - Body temperature increased [Unknown]
  - Cytomegalovirus infection [Recovered/Resolved]
  - Vomiting [Unknown]
  - Hot flush [Unknown]
  - Clostridium difficile infection [Recovered/Resolved]
  - Pyrexia [Unknown]
  - Pain [Recovered/Resolved]
  - Viral infection [Unknown]
  - Pruritus [Unknown]
  - Nausea [Recovered/Resolved]

NARRATIVE: CASE EVENT DATE: 2015
